FAERS Safety Report 5680574-3 (Version None)
Quarter: 2008Q1

REPORT INFORMATION
  Report Type: 
  Country: None (occurrence: None)
  Receive Date: 20080326
  Receipt Date: 20080314
  Transmission Date: 20080703
  Serious: Yes (Hospitalization)
  Sender: FDA-Public Use
  Company Number: ZA-GENENTECH-258095

PATIENT

DRUGS (7)
  1. MABTHERA [Suspect]
     Indication: LYMPHOMA
     Route: 042
     Dates: start: 20080310, end: 20080310
  2. CYCLOPHOSPHAMIDE [Concomitant]
     Indication: LYMPHOMA
     Dates: start: 20080311
  3. DOXORUBICIN HCL [Concomitant]
     Indication: LYMPHOMA
     Dates: start: 20080311
  4. PREDNISONE TAB [Concomitant]
     Indication: LYMPHOMA
     Dates: start: 20080311
  5. VINCRISTINE [Concomitant]
     Indication: LYMPHOMA
     Dates: start: 20080311
  6. MEDICATION (UNK INGREDIENT) [Concomitant]
     Indication: DRUG USE FOR UNKNOWN INDICATION
     Dates: start: 20080310
  7. ACETAMINOPHEN [Concomitant]
     Indication: DRUG USE FOR UNKNOWN INDICATION
     Dates: start: 20080310, end: 20080310

REACTIONS (4)
  - CONVULSION [None]
  - DISORIENTATION [None]
  - FACIAL PALSY [None]
  - THROMBOSIS [None]
